FAERS Safety Report 9508874 (Version 1)
Quarter: 2013Q3

REPORT INFORMATION
  Report Type: Spontaneous
  Country: US (occurrence: None)
  Receive Date: 20130909
  Receipt Date: 20130909
  Transmission Date: 20140515
  Serious: Yes (Hospitalization, Disabling)
  Sender: FDA-Public Use
  Company Number: None

PATIENT
  Age: 34 Year
  Sex: Female
  Weight: 56.7 kg

DRUGS (1)
  1. METHYLPARAPEN UNKNOWN STEROID [Suspect]
     Dates: start: 20100312, end: 20100315

REACTIONS (3)
  - Meningitis [None]
  - Anaemia [None]
  - Headache [None]
